FAERS Safety Report 9197663 (Version 1)
Quarter: 2013Q1

REPORT INFORMATION
  Report Type: Spontaneous
  Country: US (occurrence: US)
  Receive Date: 20130328
  Receipt Date: 20130328
  Transmission Date: 20140127
  Serious: Yes (Other)
  Sender: FDA-Public Use
  Company Number: US-PFIZER INC-2013094703

PATIENT
  Age: 22 Year
  Sex: Female

DRUGS (9)
  1. CYTARABINE [Suspect]
     Dosage: 90 MG/M2 EVERY 12 HOURS X 7 DAYS
     Route: 042
  2. PREDNISONE [Suspect]
     Dosage: 40 MG/M2/DAY X 7 DAYS
     Route: 048
  3. CARBENICILLIN INDANYL SODIUM [Suspect]
     Dosage: UNK
  4. THIOGUANINE [Suspect]
     Dosage: 90 MG/M2 EVERY 12 HOURS X 7 DAYS
     Route: 048
  5. VINCRISTINE [Suspect]
     Dosage: 1.0 MG/M 2 ON DAYS 1 AND 7
     Route: 042
  6. DAUNORUBICIN [Suspect]
     Dosage: 70 MG/M2/DAY X 3 DAYS
     Route: 042
  7. GENTAMYCIN [Suspect]
     Dosage: UNK
  8. HYDROXYUREA [Suspect]
     Dosage: 8 G, UNK
     Route: 042
  9. CEPHALOTHIN [Suspect]
     Dosage: UNK

REACTIONS (2)
  - Stillbirth [Unknown]
  - Abortion induced [Unknown]
